APPROVED DRUG PRODUCT: ARTANE
Active Ingredient: TRIHEXYPHENIDYL HYDROCHLORIDE
Strength: 5MG
Dosage Form/Route: CAPSULE, EXTENDED RELEASE;ORAL
Application: N012947 | Product #001
Applicant: LEDERLE LABORATORIES DIV AMERICAN CYANAMID CO
Approved: Approved Prior to Jan 1, 1982 | RLD: No | RS: No | Type: DISCN